FAERS Safety Report 23292999 (Version 1)
Quarter: 2023Q4

REPORT INFORMATION
  Report Type: Spontaneous
  Country: PL (occurrence: PL)
  Receive Date: 20231213
  Receipt Date: 20231213
  Transmission Date: 20240110
  Serious: Yes (Other)
  Sender: FDA-Public Use
  Company Number: PL-002147023-NVSC2023PL259132

PATIENT
  Age: 42 Year
  Sex: Female

DRUGS (2)
  1. INTERFERON BETA-1B [Suspect]
     Active Substance: INTERFERON BETA-1B
     Indication: Multiple sclerosis
     Dosage: UNK
     Route: 065
     Dates: start: 2005, end: 2007
  2. INTERFERON BETA-1B [Suspect]
     Active Substance: INTERFERON BETA-1B
     Indication: Multiple sclerosis
     Dosage: UNK
     Route: 065
     Dates: start: 2010

REACTIONS (3)
  - Multiple sclerosis relapse [None]
  - Therapeutic product effect incomplete [None]
  - Drug intolerance [None]

NARRATIVE: CASE EVENT DATE: 20110101
